FAERS Safety Report 24985871 (Version 2)
Quarter: 2025Q3

REPORT INFORMATION
  Report Type: Report from Study
  Country: US (occurrence: None)
  Receive Date: 20250219
  Receipt Date: 20250810
  Transmission Date: 20251020
  Serious: Yes (Hospitalization, Other)
  Sender: ALEXION PHARMACEUTICALS
  Company Number: US-AstraZeneca-2014SE70546

PATIENT
  Age: 50 Year
  Sex: Female
  Weight: 61.235 kg

DRUGS (11)
  1. PULMICORT TURBUHALER [Suspect]
     Active Substance: BUDESONIDE
     Dosage: 1 MILLIGRAM, BID
     Dates: start: 1995
  2. NEXIUM [Suspect]
     Active Substance: ESOMEPRAZOLE MAGNESIUM
     Indication: Ulcer
     Dosage: 40 MILLIGRAM, QD
     Dates: start: 1995
  3. THEOPHYLLINE [Concomitant]
     Active Substance: THEOPHYLLINE
     Indication: Asthma
     Dosage: 400 MILLIGRAM, QD
     Dates: start: 1990
  4. ZOLOFT [Concomitant]
     Active Substance: SERTRALINE HYDROCHLORIDE
     Indication: Mood swings
     Dosage: 100 MILLIGRAM, QD
     Dates: start: 2004
  5. ATIVAN [Concomitant]
     Active Substance: LORAZEPAM
     Indication: Anxiety
  6. ATIVAN [Concomitant]
     Active Substance: LORAZEPAM
     Indication: Nervousness
  7. LORAZEPAM [Concomitant]
     Active Substance: LORAZEPAM
     Indication: Anxiety
     Dosage: .5 MILLIGRAM, BID
  8. LORAZEPAM [Concomitant]
     Active Substance: LORAZEPAM
     Indication: Nervousness
  9. SYNTHROID [Concomitant]
     Active Substance: LEVOTHYROXINE SODIUM
     Indication: Thyroid disorder
     Dosage: 75 MILLIGRAM, QD
     Dates: start: 201401
  10. CLARITIN-D NOS [Concomitant]
     Active Substance: LORATADINE\PSEUDOEPHEDRINE SULFATE
     Indication: Hypersensitivity
  11. ALBUTEROL SULFATE [Concomitant]
     Active Substance: ALBUTEROL SULFATE
     Indication: Asthma
     Dosage: .5 MILLIGRAM, BID

REACTIONS (12)
  - Asthma [Unknown]
  - Anaphylactic reaction [Recovered/Resolved]
  - Dyspepsia [Unknown]
  - Abdominal distension [Unknown]
  - Ear infection [Unknown]
  - Sinusitis [Unknown]
  - Epicondylitis [Unknown]
  - Tinnitus [Recovered/Resolved]
  - Cough [Recovered/Resolved]
  - Product dose omission issue [Unknown]
  - Product use issue [Unknown]
  - Intentional product misuse [Unknown]

NARRATIVE: CASE EVENT DATE: 19950101
